FAERS Safety Report 5740499-1 (Version None)
Quarter: 2008Q2

REPORT INFORMATION
  Report Type: 
  Country: None (occurrence: None)
  Receive Date: 20080516
  Receipt Date: 20080513
  Transmission Date: 20081010
  Serious: Yes (Other)
  Sender: FDA-Public Use
  Company Number: FR-WYE-G01530908

PATIENT
  Age: 61 Year
  Sex: Male

DRUGS (3)
  1. ADVIL [Suspect]
     Indication: INFLAMMATION
     Dosage: 1200 MG TOTAL DAILY
     Route: 048
     Dates: start: 20080505, end: 20080511
  2. ADVIL [Suspect]
     Indication: SKIN INFECTION
  3. PYOSTACINE [Concomitant]
     Dosage: UNKNOWN
     Route: 048
     Dates: start: 20080501

REACTIONS (1)
  - RENAL FAILURE ACUTE [None]
